FAERS Safety Report 8907511 (Version 1)
Quarter: 2012Q4

REPORT INFORMATION
  Report Type: 
  Country: SE (occurrence: SE)
  Receive Date: 20121113
  Receipt Date: 20121113
  Transmission Date: 20130627
  Serious: Yes (Hospitalization)
  Sender: FDA-Public Use
  Company Number: SE-PFIZER INC-2012280188

PATIENT
  Age: 32 Year
  Sex: Female
  Weight: 75.6 kg

DRUGS (2)
  1. GENOTROPIN [Suspect]
     Dosage: 1.2 mg, 1x/day,7 injections/week
     Route: 058
     Dates: start: 20001219
  2. LEVOTHYROXINE [Concomitant]
     Indication: THYROID DISORDER
     Dosage: UNK
     Dates: start: 2003

REACTIONS (1)
  - Fluid imbalance [Unknown]
